FAERS Safety Report 6174364-5 (Version None)
Quarter: 2009Q2

REPORT INFORMATION
  Report Type: 
  Country: None (occurrence: None)
  Receive Date: 20090430
  Receipt Date: 20090420
  Transmission Date: 20091009
  Serious: Yes (Other)
  Sender: FDA-Public Use
  Company Number: GR-BAXTER-2009BH005450

PATIENT
  Age: 67 Year
  Sex: Male

DRUGS (6)
  1. NAVELBINE [Suspect]
     Indication: LUNG ADENOCARCINOMA
     Route: 042
  2. TOPOTECAN [Suspect]
     Indication: LUNG ADENOCARCINOMA
     Route: 065
  3. CISPLATIN [Suspect]
     Indication: LUNG ADENOCARCINOMA
     Route: 065
  4. DOCETAXEL [Suspect]
     Indication: LUNG ADENOCARCINOMA
     Route: 065
  5. NEUPOGEN [Concomitant]
     Indication: DRUG USE FOR UNKNOWN INDICATION
     Route: 065
  6. EPOGEN [Concomitant]
     Indication: DRUG USE FOR UNKNOWN INDICATION
     Route: 065

REACTIONS (1)
  - MULTIPLE MYELOMA [None]
